FAERS Safety Report 7781882-2 (Version None)
Quarter: 2011Q3

REPORT INFORMATION
  Report Type: 
  Country: None (occurrence: None)
  Receive Date: 20110927
  Receipt Date: 20110916
  Transmission Date: 20111222
  Serious: Yes (Hospitalization, Other)
  Sender: FDA-Public Use
  Company Number: US-SANOFI-AVENTIS-2011SA024474

PATIENT
  Age: 48 Year
  Sex: Male

DRUGS (4)
  1. LANTUS [Suspect]
     Dosage: DOSE:7 UNIT(S)
     Route: 058
  2. NOVOLOG [Concomitant]
  3. ACTOS [Concomitant]
  4. GLUCOPHAGE [Concomitant]

REACTIONS (6)
  - SKIN ULCER [None]
  - BLOOD GLUCOSE DECREASED [None]
  - FALL [None]
  - LIMB INJURY [None]
  - THROMBOSIS [None]
  - DYSPEPSIA [None]
